FAERS Safety Report 22340602 (Version 2)
Quarter: 2023Q2

REPORT INFORMATION
  Report Type: Spontaneous
  Country: US (occurrence: US)
  Receive Date: 20230518
  Receipt Date: 20230524
  Transmission Date: 20230722
  Serious: No
  Sender: FDA-Public Use
  Company Number: US-PFIZER INC-202300190398

PATIENT
  Age: 61 Year
  Sex: Female

DRUGS (1)
  1. RETACRIT [Suspect]
     Active Substance: EPOETIN ALFA-EPBX
     Dosage: UNK

REACTIONS (6)
  - Blister [Unknown]
  - Skin lesion [Unknown]
  - Skin exfoliation [Unknown]
  - Dry mouth [Unknown]
  - Diarrhoea [Unknown]
  - Gait disturbance [Unknown]
